FAERS Safety Report 10489133 (Version 1)
Quarter: 2014Q4

REPORT INFORMATION
  Report Type: Spontaneous
  Country: FR (occurrence: FR)
  Receive Date: 20141002
  Receipt Date: 20141002
  Transmission Date: 20150528
  Serious: Yes (Hospitalization)
  Sender: FDA-Public Use
  Company Number: FR-DSJP-DSJ-2014-122914AA

PATIENT

DRUGS (5)
  1. PIVALONE /00803802/ [Suspect]
     Active Substance: TIXOCORTOL PIVALATE
     Indication: PRODUCT USED FOR UNKNOWN INDICATION
     Dosage: UNK
     Route: 045
     Dates: start: 201305
  2. LEVOTHYROX [Concomitant]
     Active Substance: LEVOTHYROXINE
     Dosage: UNK
     Route: 065
  3. TEMERIT [Concomitant]
     Active Substance: NEBIVOLOL
     Dosage: UNK
     Route: 065
  4. HOMEOPATHIC PREPARATION [Concomitant]
     Active Substance: HOMEOPATHICS
     Dosage: UNK
     Route: 065
  5. OFLOXACIN OTIC [Suspect]
     Active Substance: OFLOXACIN
     Indication: PRODUCT USED FOR UNKNOWN INDICATION
     Dosage: UNK
     Route: 001
     Dates: start: 201305

REACTIONS (4)
  - Urticaria [None]
  - Hypersensitivity [Recovered/Resolved]
  - Rhinalgia [None]
  - Angioedema [None]

NARRATIVE: CASE EVENT DATE: 201305
